FAERS Safety Report 19681200 (Version 1)
Quarter: 2021Q3

REPORT INFORMATION
  Report Type: Spontaneous
  Country: CA (occurrence: CA)
  Receive Date: 20210810
  Receipt Date: 20210810
  Transmission Date: 20211014
  Serious: Yes (Other)
  Sender: FDA-Public Use
  Company Number: CA-ABBVIE-21K-028-4029739-00

PATIENT
  Age: 62 Year
  Sex: Female

DRUGS (1)
  1. LUPRON DEPOT [Suspect]
     Active Substance: LEUPROLIDE ACETATE
     Indication: VAGINAL HAEMORRHAGE
     Route: 030

REACTIONS (4)
  - Neoplasm malignant [Unknown]
  - Unevaluable event [Unknown]
  - Off label use [Unknown]
  - Obesity [Unknown]
